FAERS Safety Report 16636456 (Version 4)
Quarter: 2023Q1

REPORT INFORMATION
  Report Type: Spontaneous
  Country: US (occurrence: US)
  Receive Date: 20190726
  Receipt Date: 20230209
  Transmission Date: 20230418
  Serious: Yes (Hospitalization)
  Sender: FDA-Public Use
  Company Number: US-PFIZER INC-2019317721

PATIENT
  Age: 54 Year
  Sex: Female
  Weight: 113 kg

DRUGS (2)
  1. DESVENLAFAXINE SUCCINATE [Suspect]
     Active Substance: DESVENLAFAXINE SUCCINATE
     Indication: Depression
     Dosage: 50 MG, 1X/DAY
  2. DESVENLAFAXINE SUCCINATE [Suspect]
     Active Substance: DESVENLAFAXINE SUCCINATE
     Indication: Anxiety

REACTIONS (7)
  - Anxiety [Recovering/Resolving]
  - Crying [Not Recovered/Not Resolved]
  - Drug ineffective [Unknown]
  - Mental disorder [Unknown]
  - Insomnia [Unknown]
  - Palpitations [Unknown]
  - Irritability [Unknown]

NARRATIVE: CASE EVENT DATE: 20190501
